FAERS Safety Report 6530273-0 (Version None)
Quarter: 2009Q4

REPORT INFORMATION
  Report Type: 
  Country: None (occurrence: None)
  Receive Date: 20091231
  Receipt Date: 20091223
  Transmission Date: 20100525
  Serious: Yes (Other)
  Sender: FDA-Public Use
  Company Number: SPV1-2009-02450

PATIENT
  Age: 15 Year
  Sex: Male
  Weight: 62.6 kg

DRUGS (5)
  1. INTUNIV [Suspect]
     Indication: DRUG USE FOR UNKNOWN INDICATION
     Dosage: 1 MG, 1X/DAY;QD, ORAL; 2 MG, 1X/DAY;QD, ORAL
     Route: 048
     Dates: start: 20091115, end: 20091124
  2. INTUNIV [Suspect]
     Indication: DRUG USE FOR UNKNOWN INDICATION
     Dosage: 1 MG, 1X/DAY;QD, ORAL; 2 MG, 1X/DAY;QD, ORAL
     Route: 048
     Dates: start: 20091125, end: 20091202
  3. MULTIVITAMINS (ASCORBIC ACID, ERGOCALCIFEROL, FOLIC ACID, NICOTINAMIDE [Concomitant]
  4. FISH OIL (FISH OIL) [Concomitant]
  5. ERGOCALCIFEROL [Concomitant]

REACTIONS (4)
  - ELECTROCARDIOGRAM QT PROLONGED [None]
  - FATIGUE [None]
  - FEELING ABNORMAL [None]
  - FEELING COLD [None]
